FAERS Safety Report 18444325 (Version 2)
Quarter: 2020Q4

REPORT INFORMATION
  Report Type: Report from Study
  Country: CO (occurrence: CO)
  Receive Date: 20201030
  Receipt Date: 20201119
  Transmission Date: 20210114
  Serious: Yes (Other)
  Sender: FDA-Public Use
  Company Number: CO-ASTELLAS-2018US040090

PATIENT
  Age: 22 Year
  Sex: Female
  Weight: 50 kg

DRUGS (4)
  1. TACROLIMUS. [Suspect]
     Active Substance: TACROLIMUS
     Route: 048
     Dates: start: 202001
  2. TACROLIMUS. [Suspect]
     Active Substance: TACROLIMUS
     Indication: RENAL TRANSPLANT
     Dosage: 6 MG, ONCE DAILY (1 CAPSULE OF 1 MG AND 1 CAPSULE OF 5 MG)
     Route: 048
     Dates: start: 20141209, end: 2019
  3. MYCOPHENOLATE [Suspect]
     Active Substance: MYCOPHENOLIC ACID
     Indication: TRANSPLANT
     Route: 048
     Dates: start: 20141209
  4. TACROLIMUS. [Suspect]
     Active Substance: TACROLIMUS
     Dosage: 5 MG, ONCE DAILY (1 CAPSULE OF 5 MG)
     Route: 048
     Dates: start: 2019

REACTIONS (9)
  - Secondary immunodeficiency [Unknown]
  - Rash [Recovered/Resolved]
  - Tongue blistering [Not Recovered/Not Resolved]
  - Skin disorder [Recovering/Resolving]
  - Localised infection [Recovered/Resolved]
  - Hypersensitivity [Recovered/Resolved]
  - Mass [Not Recovered/Not Resolved]
  - Blister [Recovered/Resolved]
  - Tongue pruritus [Not Recovered/Not Resolved]

NARRATIVE: CASE EVENT DATE: 2018
